FAERS Safety Report 7607987-4 (Version None)
Quarter: 2011Q3

REPORT INFORMATION
  Report Type: 
  Country: None (occurrence: None)
  Receive Date: 20110714
  Receipt Date: 20110711
  Transmission Date: 20111222
  Serious: Yes (Other)
  Sender: FDA-Public Use
  Company Number: US-PFIZER INC-2011156869

PATIENT
  Age: 63 Year

DRUGS (1)
  1. CADUET [Suspect]
     Dosage: UNK

REACTIONS (1)
  - MYOPATHY [None]
